FAERS Safety Report 25972311 (Version 2)
Quarter: 2025Q4

REPORT INFORMATION
  Report Type: Spontaneous
  Country: US (occurrence: None)
  Receive Date: 20251029
  Receipt Date: 20251215
  Transmission Date: 20260117
  Serious: No
  Sender: UCB
  Company Number: US-UCBSA-2025047708

PATIENT
  Weight: 68.53 kg

DRUGS (2)
  1. BIMZELX [Suspect]
     Active Substance: BIMEKIZUMAB-BKZX
     Indication: Illness
     Dosage: 160 MILLIGRAM, EV 4 WEEKS
  2. BIMZELX [Suspect]
     Active Substance: BIMEKIZUMAB-BKZX
     Indication: Off label use
     Dosage: 160 MILLIGRAM, EV 4 WEEKS

REACTIONS (4)
  - Illness [Unknown]
  - Oral mucosal eruption [Unknown]
  - Oral candidiasis [Unknown]
  - Off label use [Unknown]
